FAERS Safety Report 9593383 (Version 2)
Quarter: 2013Q4

REPORT INFORMATION
  Report Type: Spontaneous
  Country: US (occurrence: None)
  Receive Date: 20131002
  Receipt Date: 20131003
  Transmission Date: 20140711
  Serious: Yes (Other)
  Sender: FDA-Public Use
  Company Number: ACO_31070_2012

PATIENT
  Age: 53 Year
  Sex: Female
  Weight: 63.5 kg

DRUGS (3)
  1. AMPYRA [Suspect]
     Indication: MULTIPLE SCLEROSIS
     Route: 048
     Dates: end: 2010
  2. COPAXONE [Concomitant]
  3. COPAXONE [Concomitant]

REACTIONS (13)
  - Lower limb fracture [None]
  - Fall [None]
  - Urinary incontinence [None]
  - Faecal incontinence [None]
  - Gait disturbance [None]
  - Cognitive disorder [None]
  - Memory impairment [None]
  - Dysarthria [None]
  - Dysphonia [None]
  - Disease progression [None]
  - Speech disorder [None]
  - Balance disorder [None]
  - Gait disturbance [None]
